FAERS Safety Report 5548887-3 (Version None)
Quarter: 2007Q4

REPORT INFORMATION
  Report Type: 
  Country: None (occurrence: None)
  Receive Date: 20071203
  Receipt Date: 20071119
  Transmission Date: 20080405
  Serious: Yes (Death, Hospitalization)
  Sender: FDA-Public Use
  Company Number: THYM-11556

PATIENT
  Age: 47 Year
  Sex: Male

DRUGS (6)
  1. THYMOGLOBULIN [Suspect]
     Indication: RENAL TRANSPLANT
     Dosage: 50 MG ONCE IV
     Route: 042
     Dates: start: 20060510, end: 20060510
  2. THYMOGLOBULIN [Suspect]
     Indication: RENAL TRANSPLANT
     Dosage: 25 MG QD IV
     Route: 042
     Dates: start: 20060511, end: 20060519
  3. TACROLIMUS [Concomitant]
  4. MMF [Concomitant]
  5. URBASON [Concomitant]
  6. CYTOTECT [Concomitant]

REACTIONS (3)
  - LEUKOPENIA [None]
  - PNEUMOCYSTIS JIROVECI PNEUMONIA [None]
  - PNEUMONIA CYTOMEGALOVIRAL [None]
